FAERS Safety Report 7860393-X (Version None)
Quarter: 2011Q4

REPORT INFORMATION
  Report Type: 
  Country: None (occurrence: None)
  Receive Date: 20111027
  Receipt Date: 20111017
  Transmission Date: 20120403
  Serious: Yes (Hospitalization, Other)
  Sender: FDA-Public Use
  Company Number: PHEH2010US00473

PATIENT
  Sex: Female

DRUGS (42)
  1. PERCOCET [Concomitant]
  2. ZOLADEX [Concomitant]
  3. CEFOXITIN [Concomitant]
     Dosage: 2 MG, UNK
  4. OXYCONTIN [Concomitant]
     Dosage: 20 MG, UNK
     Route: 048
  5. ZOMETA [Suspect]
  6. DOXYCYCLINE [Concomitant]
     Dosage: 100 MG, UNK
  7. ZOFRAN [Concomitant]
     Dosage: 4 MG, UNK
  8. CARISOPRODOL [Concomitant]
     Dosage: 350 MG, UNK
  9. LAMISIL [Concomitant]
     Dosage: QD
  10. MORPHINE SULFATE [Concomitant]
     Dosage: UNK
  11. TORADOL [Concomitant]
     Dosage: 30 MG, UNK
  12. SOMA [Concomitant]
     Dosage: 350 MG, UNK
     Route: 048
  13. TYLENOL-500 [Concomitant]
     Dosage: 650 MG, UNK
     Route: 048
  14. AMBIEN [Concomitant]
     Dosage: 10 MG, UNK
  15. TAMOXIFEN CITRATE [Concomitant]
  16. ANZEMET [Concomitant]
     Dosage: 100 MG, UNK
  17. LIDOCAINE [Concomitant]
  18. DARVOCET-N 50 [Concomitant]
     Dosage: PRN
  19. KLONOPIN [Concomitant]
     Dosage: 5 MG,BID
  20. REMERON [Concomitant]
     Dosage: QHS
  21. DULCOLAX [Concomitant]
  22. CEFTIZOXIME SODIUM [Concomitant]
  23. METRONIDAZOLE [Concomitant]
     Dosage: 500 MG, UNK
  24. DEMEROL [Concomitant]
     Dosage: 50 MG, UNK
  25. HEPARIN [Concomitant]
  26. NALOXONE [Concomitant]
     Dosage: UNK
  27. MOTRIN [Concomitant]
     Dosage: 600 MG, UNK
  28. COLACE [Concomitant]
     Dosage: ONE CAPSULE DAILY
     Route: 048
  29. TEMAZEPAM [Concomitant]
  30. PHENERGAN HCL [Concomitant]
     Dosage: 12.5 MG, UNK
  31. SONATA [Concomitant]
     Dosage: QHS
  32. NEXIUM [Concomitant]
     Dosage: QD
  33. VALIUM [Concomitant]
     Dosage: 5 MG, UNK
     Route: 048
  34. ATIVAN [Concomitant]
     Dosage: 2 MG, UNK
  35. XELODA [Concomitant]
     Dosage: 1000 MG, BID
     Route: 048
  36. COMPAZINE [Concomitant]
     Dosage: 5 MG, UNK
     Route: 048
  37. XANAX [Concomitant]
     Dosage: BID
  38. BISACODYL [Concomitant]
     Dosage: 10 MG, UNK
  39. AUGMENTIN [Concomitant]
     Dosage: 500 MG, UNK
  40. FLAGYL [Concomitant]
     Dosage: 500 MG, UNK
  41. DEXAMETHASONE [Concomitant]
     Dosage: 120 MG, UNK
  42. PREVACID [Concomitant]
     Dosage: 30 MG,.QD

REACTIONS (39)
  - GENERAL PHYSICAL HEALTH DETERIORATION [None]
  - ENDOMETRIAL HYPERPLASIA [None]
  - OSTEOLYSIS [None]
  - HYPONATRAEMIA [None]
  - LOBAR PNEUMONIA [None]
  - LUNG INFILTRATION [None]
  - PERICARDIAL CYST [None]
  - SINUSITIS [None]
  - ANXIETY [None]
  - HAND FRACTURE [None]
  - CHEST PAIN [None]
  - INTERVERTEBRAL DISC DEGENERATION [None]
  - DECREASED INTEREST [None]
  - RASH [None]
  - OSTEONECROSIS OF JAW [None]
  - PAIN [None]
  - HEPATITIS C [None]
  - LIGAMENT SPRAIN [None]
  - METASTASES TO BONE [None]
  - DEHYDRATION [None]
  - RECTAL CANCER [None]
  - PELVIC ABSCESS [None]
  - BACK PAIN [None]
  - FALL [None]
  - SEPSIS [None]
  - HYPOTENSION [None]
  - ECZEMA [None]
  - BREAST CANCER [None]
  - MUSCLE STRAIN [None]
  - PLEURAL EFFUSION [None]
  - THROMBOCYTOPENIA [None]
  - METASTASES TO LIVER [None]
  - NEOPLASM MALIGNANT [None]
  - POSTMENOPAUSAL HAEMORRHAGE [None]
  - UTERINE FIBROSIS [None]
  - INTERVERTEBRAL DISC PROTRUSION [None]
  - BONE LESION [None]
  - PAIN IN EXTREMITY [None]
  - RIB FRACTURE [None]
